FAERS Safety Report 9186870 (Version 1)
Quarter: 2013Q1

REPORT INFORMATION
  Report Type: Spontaneous
  Country: US (occurrence: US)
  Receive Date: 20130325
  Receipt Date: 20130325
  Transmission Date: 20140127
  Serious: No
  Sender: FDA-Public Use
  Company Number: US-PFIZER INC-2013092047

PATIENT
  Age: 81 Year
  Sex: Female
  Weight: 36.3 kg

DRUGS (2)
  1. FELDENE [Suspect]
     Indication: PAIN IN EXTREMITY
     Dosage: 20 MG, 1X/DAY
     Route: 048
     Dates: start: 2000
  2. ALEVE [Concomitant]
     Indication: PAIN
     Dosage: 220 MG, 2X/DAY

REACTIONS (1)
  - Osteoporosis [Unknown]
